FAERS Safety Report 8323059-8 (Version None)
Quarter: 2012Q2

REPORT INFORMATION
  Report Type: 
  Country: None (occurrence: None)
  Receive Date: 20120430
  Receipt Date: 20120419
  Transmission Date: 20120825
  Serious: Yes (Other)
  Sender: FDA-Public Use
  Company Number: CA-JNJFOC-20120409011

PATIENT
  Sex: Male
  Weight: 86 kg

DRUGS (6)
  1. REMICADE [Suspect]
     Indication: ANKYLOSING SPONDYLITIS
     Dosage: DOSE = ^40MG^
     Route: 042
     Dates: start: 20110726
  2. OMEPRAZOLE [Concomitant]
  3. METHOTREXATE [Concomitant]
  4. WELLBUTRIN [Concomitant]
  5. FOLIC ACID [Concomitant]
  6. CELEBREX [Concomitant]

REACTIONS (3)
  - VISION BLURRED [None]
  - HEADACHE [None]
  - NAUSEA [None]
